FAERS Safety Report 5989321-9 (Version None)
Quarter: 2008Q4

REPORT INFORMATION
  Report Type: 
  Country: None (occurrence: None)
  Receive Date: 20081210
  Receipt Date: 20081203
  Transmission Date: 20090506
  Serious: Yes (Death, Hospitalization)
  Sender: FDA-Public Use
  Company Number: US-AVENTIS-200821300GDDC

PATIENT
  Age: 67 Year
  Sex: Male
  Weight: 47 kg

DRUGS (14)
  1. DOCETAXEL [Suspect]
     Indication: HEAD AND NECK CANCER
     Dosage: DOSE: 45 (68 MG)
     Route: 042
  2. OXALIPLATIN [Suspect]
     Indication: HEAD AND NECK CANCER
     Route: 042
  3. ALBUTEROL SULFATE AND IPRATROPIUM BROMIDE [Concomitant]
     Dosage: DOSE QUANTITY: 90
     Route: 055
  4. ALPRAZOLAM [Concomitant]
     Dosage: DOSE: 1 MG TID
     Route: 048
  5. CIPROFLOXACIN [Concomitant]
     Route: 048
  6. DOCUSATE SODIUM W/SENNA [Concomitant]
     Dosage: DOSE: 50/8.6 2 TABLETS
     Route: 048
  7. NEUPOGEN [Concomitant]
     Dosage: DOSE: 300 MCG
     Route: 058
  8. LORAZEPAM [Concomitant]
     Dosage: DOSE: UNK
  9. FLUCONAZOLE [Concomitant]
     Dosage: DOSE: 100 FOR 10 DAYS
     Route: 048
  10. MOMETASONE FUROATE [Concomitant]
     Indication: RHINITIS
     Dosage: DOSE: 50 MCG
  11. ONDANSETRON [Concomitant]
     Indication: NAUSEA
     Dosage: DOSE: 4 Q6H
     Route: 048
  12. OXYCODONE HCL [Concomitant]
     Indication: PAIN
     Dosage: DOSE: 5 MG Q6H
     Route: 048
  13. PILOCARPINE [Concomitant]
     Route: 048
  14. RANITIDINE [Concomitant]
     Dosage: DOSE: UNK

REACTIONS (11)
  - ACUTE RESPIRATORY FAILURE [None]
  - FALL [None]
  - HAEMOGLOBIN DECREASED [None]
  - HYPOTENSION [None]
  - INJURY [None]
  - LIMB INJURY [None]
  - MALNUTRITION [None]
  - PNEUMONIA ASPIRATION [None]
  - PULMONARY OEDEMA [None]
  - SEPTIC SHOCK [None]
  - SUICIDAL IDEATION [None]
